FAERS Safety Report 5398635-5 (Version None)
Quarter: 2007Q3

REPORT INFORMATION
  Report Type: 
  Country: None (occurrence: None)
  Receive Date: 20070726
  Receipt Date: 20060616
  Transmission Date: 20080115
  Serious: No
  Sender: FDA-Public Use
  Company Number: US-AMGEN-KDL183954

PATIENT
  Sex: Female
  Weight: 84 kg

DRUGS (3)
  1. PROCRIT [Suspect]
     Indication: RENAL FAILURE CHRONIC
     Route: 058
     Dates: start: 20060528
  2. LISINOPRIL AND HYDROCHLOROTHIAZIDE [Concomitant]
  3. CRESTOR [Concomitant]

REACTIONS (3)
  - ANOREXIA [None]
  - DIZZINESS [None]
  - NAUSEA [None]
